FAERS Safety Report 20044104 (Version 17)
Quarter: 2022Q2

REPORT INFORMATION
  Report Type: Report from Study
  Country: RU (occurrence: RU)
  Receive Date: 20211108
  Receipt Date: 20220628
  Transmission Date: 20220720
  Serious: Yes (Hospitalization)
  Sender: FDA-Public Use
  Company Number: RU-ASTELLAS-2021US042176

PATIENT
  Age: 70 Year
  Sex: Female

DRUGS (12)
  1. ENFORTUMAB VEDOTIN [Suspect]
     Active Substance: ENFORTUMAB VEDOTIN
     Indication: Bladder cancer
     Dosage: 88.75 MG, CYCLIC (ON DAY 1 AND 8 OF EACH CYCLE EVERY THREE WEEKS (Q3W))
     Route: 042
     Dates: start: 20210902, end: 20211015
  2. ENFORTUMAB VEDOTIN [Suspect]
     Active Substance: ENFORTUMAB VEDOTIN
     Dosage: 88.75 MG, CYCLIC (ON DAY 1 AND 8 OF EACH CYCLE EVERY THREE WEEKS (Q3W))
     Route: 042
     Dates: start: 20211021, end: 20211021
  3. ENFORTUMAB VEDOTIN [Suspect]
     Active Substance: ENFORTUMAB VEDOTIN
     Dosage: 88.75 MG, CYCLIC (ON DAY 1 AND 8 OF EACH CYCLE EVERY THREE WEEKS (Q3W))
     Route: 042
     Dates: start: 20220214
  4. PEMBROLIZUMAB [Suspect]
     Active Substance: PEMBROLIZUMAB
     Indication: Bladder cancer
     Dosage: UNK UNK, EVERY 3 WEEKS
     Route: 042
     Dates: start: 20210902, end: 20210924
  5. PEMBROLIZUMAB [Suspect]
     Active Substance: PEMBROLIZUMAB
     Dosage: UNK UNK, EVERY 3 WEEKS
     Route: 042
     Dates: start: 20211015, end: 20211015
  6. PEMBROLIZUMAB [Suspect]
     Active Substance: PEMBROLIZUMAB
     Dosage: UNK UNK, EVERY 3 WEEKS
     Route: 042
     Dates: start: 20220214
  7. EMPAGLIFLOZIN [Concomitant]
     Active Substance: EMPAGLIFLOZIN
     Indication: Product used for unknown indication
     Route: 065
     Dates: start: 20210927
  8. LACTULOSE [Concomitant]
     Active Substance: LACTULOSE
     Indication: Product used for unknown indication
     Route: 048
     Dates: start: 20210927, end: 20211201
  9. REBAMIPIDE [Concomitant]
     Active Substance: REBAMIPIDE
     Indication: Product used for unknown indication
     Route: 065
     Dates: start: 20210927, end: 20211112
  10. ONDANSETRON [Concomitant]
     Active Substance: ONDANSETRON
     Indication: Product used for unknown indication
     Route: 065
     Dates: start: 20211015, end: 20211015
  11. DEXAMETHASONE [Concomitant]
     Active Substance: DEXAMETHASONE
     Indication: Product used for unknown indication
     Route: 065
     Dates: start: 20211015, end: 20211015
  12. INSULIN NOS [Concomitant]
     Active Substance: INSULIN NOS
     Indication: Product used for unknown indication
     Route: 065
     Dates: start: 20211015, end: 20211021

REACTIONS (2)
  - Pancreatitis acute [Recovered/Resolved with Sequelae]
  - Gastrooesophageal reflux disease [Recovered/Resolved]

NARRATIVE: CASE EVENT DATE: 20211024
